FAERS Safety Report 5362533-3 (Version None)
Quarter: 2007Q2

REPORT INFORMATION
  Report Type: 
  Country: None (occurrence: None)
  Receive Date: 20070619
  Receipt Date: 20070612
  Transmission Date: 20071010
  Serious: Yes (Other)
  Sender: FDA-Public Use
  Company Number: US-SHR-US-2007-022282

PATIENT
  Sex: Female

DRUGS (1)
  1. CLIMARA PRO [Suspect]
     Route: 062
     Dates: start: 20050609, end: 20050926

REACTIONS (2)
  - HYPOAESTHESIA [None]
  - NON-HODGKIN'S LYMPHOMA [None]
